FAERS Safety Report 24735277 (Version 1)
Quarter: 2024Q4

REPORT INFORMATION
  Report Type: Spontaneous
  Country: JP (occurrence: JP)
  Receive Date: 20241215
  Receipt Date: 20241215
  Transmission Date: 20250115
  Serious: Yes (Hospitalization)
  Sender: NOVAST LABORATORIES LTD
  Company Number: JP-NOVAST LABORATORIES INC.-2024NOV000334

PATIENT
  Age: 67 Year
  Sex: Male

DRUGS (3)
  1. FLUOROURACIL [Suspect]
     Active Substance: FLUOROURACIL
     Indication: Gastric cancer stage IV
     Dosage: 400 MILLIGRAM/SQ. METER, RAPID INTRAVENOUS INFUSION
     Route: 042
  2. OXALIPLATIN [Concomitant]
     Active Substance: OXALIPLATIN
     Indication: Gastric cancer stage IV
     Dosage: 85 MILLIGRAM/SQ. METER, RAPID INTRAVENOUS INFUSION
     Route: 042
  3. LEVOLEUCOVORIN CALCIUM [Concomitant]
     Active Substance: LEVOLEUCOVORIN CALCIUM
     Indication: Gastric cancer stage IV
     Dosage: 200 MILLIGRAM/SQ. METER, RAPID INTRAVENOUS INFUSION
     Route: 042

REACTIONS (2)
  - Lactic acidosis [Recovering/Resolving]
  - Hyperammonaemia [Recovering/Resolving]
